FAERS Safety Report 10098566 (Version 7)
Quarter: 2016Q2

REPORT INFORMATION
  Report Type: Spontaneous
  Country: GB (occurrence: GB)
  Receive Date: 20140423
  Receipt Date: 20160401
  Transmission Date: 20160815
  Serious: Yes (Other)
  Sender: FDA-Public Use
  Company Number: PHFR2014GB002982

PATIENT
  Sex: Female

DRUGS (2)
  1. ZOMETA [Suspect]
     Active Substance: ZOLEDRONIC ACID
     Indication: PRODUCT USED FOR UNKNOWN INDICATION
     Dosage: UNK
     Route: 065
  2. ZOMETA [Suspect]
     Active Substance: ZOLEDRONIC ACID
     Dosage: 3 MG, MONTHLY
     Route: 065

REACTIONS (15)
  - Neuropathy peripheral [Not Recovered/Not Resolved]
  - Blood pressure increased [Unknown]
  - Dyspnoea exertional [Unknown]
  - Fatigue [Unknown]
  - Decreased appetite [Unknown]
  - Blood creatinine increased [Unknown]
  - Lower respiratory tract infection [Unknown]
  - Back pain [Not Recovered/Not Resolved]
  - Constipation [Not Recovered/Not Resolved]
  - Pain [Unknown]
  - Spinal compression fracture [Unknown]
  - Dyspnoea [Unknown]
  - Blood urea increased [Unknown]
  - Asthenia [Not Recovered/Not Resolved]
  - Arthralgia [Unknown]
